FAERS Safety Report 23759660 (Version 4)
Quarter: 2024Q4

REPORT INFORMATION
  Report Type: Spontaneous
  Country: JP (occurrence: JP)
  Receive Date: 20240419
  Receipt Date: 20241224
  Transmission Date: 20250114
  Serious: Yes (Life-Threatening, Hospitalization, Other)
  Sender: ALEXION PHARMACEUTICALS
  Company Number: 2024A089478

PATIENT
  Age: 74 Year
  Weight: 56 kg

DRUGS (4)
  1. IMFINZI [Suspect]
     Active Substance: DURVALUMAB
     Indication: Hepatocellular carcinoma
     Dosage: 1500 MILLIGRAM, UNK
  2. IMJUDO [Suspect]
     Active Substance: TREMELIMUMAB\TREMELIMUMAB-ACTL
     Indication: Hepatocellular carcinoma
     Dosage: 300 MILLIGRAM, UNK
  3. TRAMADOL [Concomitant]
     Active Substance: TRAMADOL
     Dosage: DOSE UNKNOWN
  4. TRAMADOL [Concomitant]
     Active Substance: TRAMADOL
     Dosage: DOSE UNKNOWN

REACTIONS (1)
  - Immune-mediated hepatic disorder [Recovering/Resolving]
